FAERS Safety Report 5199906-8 (Version None)
Quarter: 2007Q1

REPORT INFORMATION
  Report Type: 
  Country: None (occurrence: None)
  Receive Date: 20070102
  Receipt Date: 20070102
  Transmission Date: 20070707
  Serious: Yes (Hospitalization, Disabling)
  Sender: FDA-Public Use
  Company Number: None

PATIENT
  Age: 65 Year
  Sex: Male
  Weight: 93 kg

DRUGS (10)
  1. FENTANYL [Suspect]
     Indication: COLONOSCOPY
     Dosage: 25MCG  X3  IV
     Route: 042
     Dates: start: 20061212, end: 20061212
  2. FENTANYL [Suspect]
     Indication: SEDATIVE THERAPY
     Dosage: 25MCG  X3  IV
     Route: 042
     Dates: start: 20061212, end: 20061212
  3. MIDAZOLAM HCL [Suspect]
     Indication: COLONOSCOPY
     Dosage: 1MG  X3  IV
     Route: 042
     Dates: start: 20061212, end: 20061212
  4. MIDAZOLAM HCL [Suspect]
     Indication: SEDATIVE THERAPY
     Dosage: 1MG  X3  IV
     Route: 042
     Dates: start: 20061212, end: 20061212
  5. DILTIAZEM HCL [Concomitant]
  6. NPH INSULIN [Concomitant]
  7. POTASSIUM CHLORIDE [Concomitant]
  8. SYNTHROID [Concomitant]
  9. ALBUTEROL [Concomitant]
  10. LASIX [Concomitant]

REACTIONS (3)
  - OXYGEN SATURATION DECREASED [None]
  - PROCEDURAL COMPLICATION [None]
  - RESPIRATORY DISORDER [None]
